FAERS Safety Report 10120779 (Version 2)
Quarter: 2014Q2

REPORT INFORMATION
  Report Type: Spontaneous
  Country: CA (occurrence: CA)
  Receive Date: 20140425
  Receipt Date: 20140509
  Transmission Date: 20141212
  Serious: Yes (Life-Threatening, Hospitalization, Other)
  Sender: FDA-Public Use
  Company Number: CA-IAC JAPAN XML-CAN-2014-0004836

PATIENT
  Sex: Female

DRUGS (2)
  1. BUTRANS TRANSDERMAL PATCH - 20 MCG/HR [Suspect]
     Indication: PAIN
     Dosage: 20 PATCH, SINGLE
     Route: 062
  2. BUTRANS TRANSDERMAL PATCH - 20 MCG/HR [Suspect]
     Dosage: 20 MCG, Q1H
     Route: 062

REACTIONS (3)
  - Intentional overdose [Recovered/Resolved]
  - Suicide attempt [Recovered/Resolved]
  - Intentional product misuse [Recovered/Resolved]
